FAERS Safety Report 4867330-0 (Version None)
Quarter: 2005Q4

REPORT INFORMATION
  Report Type: 
  Country: None (occurrence: None)
  Receive Date: 20051223
  Receipt Date: 20051223
  Transmission Date: 20060501
  Serious: Yes (Hospitalization)
  Sender: FDA-Public Use
  Company Number: None

PATIENT
  Age: 76 Year
  Sex: Male
  Weight: 123.832 kg

DRUGS (12)
  1. TAXOTERE [Suspect]
     Indication: PROSTATE CANCER
     Dosage: 59 MG    D1,D8,D15 Q 28 D   IV DRIP
     Route: 041
     Dates: start: 20050901, end: 20051111
  2. DOXIL [Suspect]
     Dosage: 59 MD    EVERY 28 DAYS   IV DRIP
     Route: 041
     Dates: start: 20050901, end: 20051111
  3. COUMADIN [Concomitant]
  4. OXYCODONE [Concomitant]
  5. KYTRIL [Concomitant]
  6. REGLAN [Concomitant]
  7. MEGACE [Concomitant]
  8. FLONASE [Concomitant]
  9. ASPRIN [Concomitant]
  10. LISINPRIL [Concomitant]
  11. MULTI-VIT [Concomitant]
  12. DURAGESIC-100 [Concomitant]

REACTIONS (5)
  - ANAEMIA [None]
  - DEHYDRATION [None]
  - NEUTROPENIA [None]
  - ORAL INTAKE REDUCED [None]
  - URINE OUTPUT DECREASED [None]
